FAERS Safety Report 5373482-9 (Version None)
Quarter: 2007Q2

REPORT INFORMATION
  Report Type: 
  Country: None (occurrence: None)
  Receive Date: 20070626
  Receipt Date: 20070626
  Transmission Date: 20071010
  Serious: No
  Sender: FDA-Public Use
  Company Number: None

PATIENT
  Sex: Female
  Weight: 59 kg

DRUGS (2)
  1. CYTARABINE [Suspect]
  2. DAUNORUBICIN HCL [Suspect]

REACTIONS (8)
  - ABDOMINAL PAIN LOWER [None]
  - ANOREXIA [None]
  - COLITIS [None]
  - DIARRHOEA [None]
  - DISEASE RECURRENCE [None]
  - NAUSEA [None]
  - ORAL INTAKE REDUCED [None]
  - PYREXIA [None]
